FAERS Safety Report 5647208-5 (Version None)
Quarter: 2008Q1

REPORT INFORMATION
  Report Type: 
  Country: None (occurrence: None)
  Receive Date: 20080228
  Receipt Date: 20080228
  Transmission Date: 20080703
  Serious: Yes (Other)
  Sender: FDA-Public Use
  Company Number: None

PATIENT
  Sex: Female
  Weight: 87.9978 kg

DRUGS (13)
  1. RECLAST [Suspect]
     Indication: OSTEOPOROSIS
     Dosage: 5MG ONCE IV
     Route: 042
     Dates: start: 20080122, end: 20080122
  2. FOLIC ACID [Concomitant]
  3. METHOTREXATE [Concomitant]
  4. PRAVACHOL [Concomitant]
  5. ZETIA [Concomitant]
  6. ATENOLOL [Concomitant]
  7. HYDROCHLOROTHIAZIDE [Concomitant]
  8. CALCIUM PLUS VITAMIN D [Concomitant]
  9. ASPIRIN [Concomitant]
  10. OMEGA-3 FISH OIL [Concomitant]
  11. ZANTAC [Concomitant]
  12. BENADRYL [Concomitant]
  13. VICODIN [Concomitant]

REACTIONS (3)
  - FEELING HOT [None]
  - MYALGIA [None]
  - OEDEMA PERIPHERAL [None]
